FAERS Safety Report 24410163 (Version 2)
Quarter: 2024Q4

REPORT INFORMATION
  Report Type: Report from Study
  Country: US (occurrence: US)
  Receive Date: 20241008
  Receipt Date: 20241216
  Transmission Date: 20250114
  Serious: Yes (Hospitalization, Other)
  Sender: AMGEN
  Company Number: US-AMGEN-USASL2024158338

PATIENT
  Age: 19 Year
  Sex: Male

DRUGS (12)
  1. BLINCYTO [Suspect]
     Active Substance: BLINATUMOMAB
     Indication: B precursor type acute leukaemia
     Dosage: UNK
     Route: 065
  2. ASPARLAS [Concomitant]
     Active Substance: CALASPARGASE PEGOL-MKNL
     Dosage: 750 U/ML
     Route: 042
     Dates: start: 20240123
  3. ONDANSETRON HYDROCHLORIDE [Concomitant]
     Active Substance: ONDANSETRON HYDROCHLORIDE
     Dosage: 4 MILLIGRAM TABLET
     Route: 048
  4. ONDANSETRON HYDROCHLORIDE [Concomitant]
     Active Substance: ONDANSETRON HYDROCHLORIDE
     Dosage: UNK, TAKE 2 TABLET BY ORAL ROUTE 3 TIMES A DAY (4 MG TABLET)
  5. PENTAMIDINE [Concomitant]
     Active Substance: PENTAMIDINE
     Indication: Prophylaxis
     Dosage: 300 MILLIGRAM, Q4WK
     Route: 042
  6. LEVOCARNITINE [Concomitant]
     Active Substance: LEVOCARNITINE
     Dosage: 330 MILLIGRAM
     Dates: start: 20240129
  7. MERCAPTOPURINE [Concomitant]
     Active Substance: MERCAPTOPURINE
     Dosage: UNK, TAKE 2.5 TABS BY MOUTH MONDAY-SATURDAY AND 2 TABS ON SUNDAY ON DAYS 1-14 AND 29-42 OF CONSOLIDA
     Route: 048
     Dates: start: 20240129
  8. CEPHALEXIN [Concomitant]
     Active Substance: CEPHALEXIN
     Dosage: 500 MILLIGRAM CAPSULE
     Route: 048
     Dates: start: 20240129
  9. BENADRYL [Concomitant]
     Active Substance: DIPHENHYDRAMINE HYDROCHLORIDE
     Dosage: UNK, TAKE 1-2 CAPSULE BY ORAL ROUTE EVERY 6 HOURS AS NEEDED
     Dates: start: 20240201
  10. ATIVAN [Concomitant]
     Active Substance: LORAZEPAM
     Dosage: 1 DOSAGE FORM, QID, TAKE 1 TABLET BY ORAL ROUTE 4 TIMES A DAY, 1 MILLIGRAM TABLET
     Dates: start: 20240205
  11. SCOPOLAMINE [Concomitant]
     Active Substance: SCOPOLAMINE
     Dosage: 1 MILLIGRAM, OVER 3 DAYS TRANSDERMAL PATCH
     Route: 062
     Dates: start: 20240208
  12. SULFAMETHOXAZOLE AND TRIMETHOPRIM [Concomitant]
     Active Substance: SULFAMETHOXAZOLE\TRIMETHOPRIM
     Dosage: 1 DOSAGE FORM, BID, SULFAMETHOXAZOLE 800 MG-TRIMETHOPRIM 160 MG
     Route: 048
     Dates: start: 20240319

REACTIONS (3)
  - Atrial thrombosis [Unknown]
  - Staphylococcal bacteraemia [Unknown]
  - Chills [Unknown]
